FAERS Safety Report 7543007-8 (Version None)
Quarter: 2011Q2

REPORT INFORMATION
  Report Type: 
  Country: None (occurrence: None)
  Receive Date: 20110613
  Receipt Date: 20110530
  Transmission Date: 20111010
  Serious: Yes (Hospitalization)
  Sender: FDA-Public Use
  Company Number: TR-GENENTECH-319954

PATIENT
  Age: 66 Year
  Sex: Female

DRUGS (1)
  1. XOLAIR [Suspect]
     Indication: ASTHMA
     Dosage: UNK UNK, UNKNOWN
     Route: 065
     Dates: start: 20110301

REACTIONS (4)
  - CARDIAC FAILURE [None]
  - PAIN IN EXTREMITY [None]
  - MYOCARDITIS [None]
  - ALLERGIC GRANULOMATOUS ANGIITIS [None]
